FAERS Safety Report 5677625-9 (Version None)
Quarter: 2008Q1

REPORT INFORMATION
  Report Type: 
  Country: None (occurrence: None)
  Receive Date: 20080318
  Receipt Date: 20080306
  Transmission Date: 20080703
  Serious: Yes (Life-Threatening, Hospitalization)
  Sender: FDA-Public Use
  Company Number: GXKR2008GB02355

PATIENT
  Age: 77 Year
  Sex: Female

DRUGS (7)
  1. ACETYLSALICYLIC ACID (NGX)(ACETYLSALICYLIC ACID) UNKNOWN [Suspect]
     Dosage: 75 MG, QD, ORAL
     Route: 048
     Dates: start: 20010101, end: 20080220
  2. ETORICOXIB(ETORICOXIB) [Suspect]
     Dosage: 60 MG, QD, ORAL
     Route: 048
     Dates: start: 20041001, end: 20080220
  3. ATORVASTATIN CALCIUM [Concomitant]
  4. CANDESARTAN CILEXETIL [Concomitant]
  5. GLICLAZIDE (GLICLAZIDE) [Concomitant]
  6. NIFEDIPINE [Concomitant]
  7. ROSIGLITAZONE [Concomitant]

REACTIONS (1)
  - DUODENAL ULCER PERFORATION [None]
